FAERS Safety Report 4485813-2 (Version None)
Quarter: 2004Q4

REPORT INFORMATION
  Report Type: 
  Country: None (occurrence: None)
  Receive Date: 20041022
  Receipt Date: 20041013
  Transmission Date: 20050328
  Serious: Yes (Death, Hospitalization)
  Sender: FDA-Public Use
  Company Number: 163-20785-04080262

PATIENT
  Age: 79 Year
  Sex: Male

DRUGS (3)
  1. THALOMID [Suspect]
     Indication: MYELODYSPLASTIC SYNDROME
     Dosage: 200 MG, QHS, ORAL
     Route: 048
     Dates: start: 20040623, end: 20040824
  2. PROCRIT [Concomitant]
  3. NEUPOGEN [Concomitant]

REACTIONS (3)
  - DEHYDRATION [None]
  - NECROSIS [None]
  - NEUTROPENIC SEPSIS [None]
